FAERS Safety Report 9084525 (Version 1)
Quarter: 2013Q1

REPORT INFORMATION
  Report Type: Spontaneous
  Country: UA (occurrence: UA)
  Receive Date: 20130131
  Receipt Date: 20130131
  Transmission Date: 20140127
  Serious: Yes (Other)
  Sender: FDA-Public Use
  Company Number: UA-JNJFOC-20130113298

PATIENT
  Age: 3 Year
  Sex: 0

DRUGS (2)
  1. ORUNGAL [Suspect]
     Indication: MICROSPORIDIA INFECTION
     Route: 048
     Dates: start: 20120822, end: 20120826
  2. TERBINAFINE [Concomitant]
     Indication: PRODUCT USED FOR UNKNOWN INDICATION
     Route: 065
     Dates: start: 20120722, end: 20120821

REACTIONS (3)
  - Gait disturbance [Recovered/Resolved]
  - Toxic encephalopathy [Recovered/Resolved]
  - Headache [Recovered/Resolved]
